FAERS Safety Report 4765475-7 (Version None)
Quarter: 2005Q3

REPORT INFORMATION
  Report Type: 
  Country: None (occurrence: None)
  Receive Date: 20050906
  Receipt Date: 20050823
  Transmission Date: 20060218
  Serious: Yes (Congenital Anomaly, Other)
  Sender: FDA-Public Use
  Company Number: 2005118782

PATIENT
  Age: 21 Year
  Sex: Male

DRUGS (3)
  1. DILANTIN [Suspect]
     Indication: CONVULSION
     Dosage: 300 MG (300 MG , 1 IN 1 D), ORAL
     Route: 048
  2. PHENOBARBITAL TAB [Concomitant]
  3. DEPAKENE [Concomitant]

REACTIONS (6)
  - CEREBRAL ATROPHY [None]
  - CONVULSION [None]
  - DYSPLASIA [None]
  - GASTRITIS [None]
  - NAUSEA [None]
  - NERVOUS SYSTEM DISORDER [None]
